FAERS Safety Report 5284599-1 (Version None)
Quarter: 2007Q1

REPORT INFORMATION
  Report Type: 
  Country: None (occurrence: None)
  Receive Date: 20061229
  Receipt Date: 20051227
  Transmission Date: 20070707
  Serious: Yes (Other)
  Sender: FDA-Public Use
  Company Number: PHEH2005US12262

PATIENT
  Age: 46 Year
  Sex: Female
  Weight: 73 kg

DRUGS (8)
  1. CLOZARIL [Suspect]
     Indication: SCHIZOPHRENIA
     Dosage: 125MG QAM, 200MG QHS, ORAL
     Route: 048
     Dates: start: 19960913, end: 19991201
  2. CLOZARIL [Suspect]
     Indication: SCHIZOPHRENIA
     Dosage: 125MG QAM, 200MG QHS, ORAL
     Route: 048
     Dates: start: 20030804
  3. CLOZAPINE [Suspect]
     Indication: SCHIZOPHRENIA
     Dates: start: 19991201
  4. GLUCOTROL [Concomitant]
  5. GLUCOPHAGE [Concomitant]
  6. ACTOS /USA/ (PIOGLITAZONE, PIOGLITAZONE HYDROCHLORIDE) [Concomitant]
  7. SYNTHROID [Concomitant]
  8. BENADRYL [Concomitant]

REACTIONS (2)
  - AMENORRHOEA [None]
  - DIABETES MELLITUS [None]
